FAERS Safety Report 12509717 (Version 1)
Quarter: 2016Q2

REPORT INFORMATION
  Report Type: Spontaneous
  Country: US (occurrence: US)
  Receive Date: 20160629
  Receipt Date: 20160629
  Transmission Date: 20160815
  Serious: No
  Sender: FDA-Public Use
  Company Number: US-AMGEN-USASP2016082792

PATIENT
  Age: 58 Year
  Sex: Male

DRUGS (1)
  1. ENBREL [Suspect]
     Active Substance: ETANERCEPT
     Indication: PRODUCT USED FOR UNKNOWN INDICATION
     Dosage: UNK UNK, UNK
     Route: 065

REACTIONS (10)
  - Fatigue [Unknown]
  - Night sweats [Unknown]
  - Skin discolouration [Unknown]
  - Faeces discoloured [Not Recovered/Not Resolved]
  - Gait disturbance [Unknown]
  - Impaired work ability [Unknown]
  - Poor quality sleep [Unknown]
  - Arthralgia [Unknown]
  - Body temperature abnormal [Unknown]
  - Nodule [Unknown]

NARRATIVE: CASE EVENT DATE: 201606
